FAERS Safety Report 21281130 (Version 1)
Quarter: 2022Q3

REPORT INFORMATION
  Report Type: Spontaneous
  Country: US (occurrence: None)
  Receive Date: 20220901
  Receipt Date: 20220901
  Transmission Date: 20221026
  Serious: Yes (Other)
  Sender: FDA-Public Use
  Company Number: US-ROCHE-3165277

PATIENT
  Sex: Female

DRUGS (2)
  1. VABYSMO [Suspect]
     Active Substance: FARICIMAB-SVOA
     Indication: Neovascular age-related macular degeneration
     Route: 065
  2. DUREZOL [Concomitant]
     Active Substance: DIFLUPREDNATE
     Dosage: ONE DROP IN THE RIGHT EYE EVERY 2-3 HOURS
     Route: 065

REACTIONS (4)
  - Off label use [Unknown]
  - No adverse event [Unknown]
  - Iridocyclitis [Unknown]
  - Vitreous floaters [Unknown]
